FAERS Safety Report 18896987 (Version 1)
Quarter: 2021Q1

REPORT INFORMATION
  Report Type: Spontaneous
  Country: US (occurrence: US)
  Receive Date: 20210216
  Receipt Date: 20210216
  Transmission Date: 20210420
  Serious: No
  Sender: FDA-Public Use
  Company Number: US-SA-2021SA050343

PATIENT
  Sex: Female

DRUGS (17)
  1. OXYBUTYNIN. [Concomitant]
     Active Substance: OXYBUTYNIN CHLORIDE
  2. VITAMIN B12 [Concomitant]
     Active Substance: CYANOCOBALAMIN
  3. BUSPIRONE [Concomitant]
     Active Substance: BUSPIRONE HYDROCHLORIDE
  4. DIAZEPAM. [Concomitant]
     Active Substance: DIAZEPAM
  5. ELIQUIS [Concomitant]
     Active Substance: APIXABAN
  6. VITAMIN D NOS [Concomitant]
     Active Substance: VITAMIN D NOS
  7. CLONIDINE. [Concomitant]
     Active Substance: CLONIDINE
  8. MONTELUKAST [Concomitant]
     Active Substance: MONTELUKAST SODIUM
  9. ZYRTEC [Concomitant]
     Active Substance: CETIRIZINE HYDROCHLORIDE
  10. DULERA [Concomitant]
     Active Substance: FORMOTEROL FUMARATE DIHYDRATE\MOMETASONE FUROATE
  11. MOTRIN [NAPROXEN] [Concomitant]
     Active Substance: NAPROXEN
  12. PEPCID [Concomitant]
     Active Substance: FAMOTIDINE
  13. PROVIGIL [Concomitant]
     Active Substance: MODAFINIL
  14. TYLENOL [Concomitant]
     Active Substance: ACETAMINOPHEN
  15. AUBAGIO [Suspect]
     Active Substance: TERIFLUNOMIDE
     Indication: MULTIPLE SCLEROSIS
  16. OCREVUS [Concomitant]
     Active Substance: OCRELIZUMAB
  17. ALBUTEROL [SALBUTAMOL] [Concomitant]
     Active Substance: ALBUTEROL

REACTIONS (1)
  - Blood pressure increased [Unknown]
